FAERS Safety Report 9456949 (Version 3)
Quarter: 2013Q4

REPORT INFORMATION
  Report Type: Spontaneous
  Country: GB (occurrence: GB)
  Receive Date: 20130814
  Receipt Date: 20131101
  Transmission Date: 20140711
  Serious: Yes (Death, Hospitalization, Other)
  Sender: FDA-Public Use
  Company Number: GB-AMGEN-GBRSP2013056593

PATIENT
  Age: 85 Year
  Sex: Female
  Weight: 51 kg

DRUGS (2)
  1. PROLIA [Suspect]
     Indication: OSTEOPOROSIS
     Dosage: UNK UNK, Q6MO
     Route: 058
     Dates: start: 20110719
  2. PREDNISOLONE [Concomitant]

REACTIONS (7)
  - Peptic ulcer [Fatal]
  - Duodenal ulcer perforation [Fatal]
  - Haemorrhage [Fatal]
  - Dermatomyositis [Unknown]
  - Respiratory failure [Unknown]
  - Respiratory distress [Unknown]
  - Melaena [Unknown]
